FAERS Safety Report 5975012-7 (Version None)
Quarter: 2008Q4

REPORT INFORMATION
  Report Type: 
  Country: None (occurrence: None)
  Receive Date: 20081202
  Receipt Date: 20081127
  Transmission Date: 20090506
  Serious: Yes (Other)
  Sender: FDA-Public Use
  Company Number: BR-JNJFOC-20081200112

PATIENT
  Age: 26 Year
  Sex: Male

DRUGS (1)
  1. LEVAQUIN [Suspect]
     Indication: INFECTION
     Route: 042

REACTIONS (3)
  - CHEST PAIN [None]
  - MALAISE [None]
  - RESPIRATORY DISORDER [None]
